FAERS Safety Report 15844581 (Version 1)
Quarter: 2019Q1

REPORT INFORMATION
  Report Type: Spontaneous
  Country: JP (occurrence: JP)
  Receive Date: 20190118
  Receipt Date: 20190118
  Transmission Date: 20190417
  Serious: Yes (Hospitalization)
  Sender: FDA-Public Use
  Company Number: JP-MYLANLABS-2019M1003597

PATIENT
  Age: 3 Decade
  Sex: Female

DRUGS (5)
  1. PREDNISOLONE. [Suspect]
     Active Substance: PREDNISOLONE
     Indication: ALOPECIA AREATA
     Route: 048
     Dates: start: 201509
  2. TRIAMCINOLONE [Suspect]
     Active Substance: TRIAMCINOLONE
     Dosage: 5 TIMES PER WEEK.
     Route: 026
     Dates: start: 201101, end: 201102
  3. MOMETASONE FUROATE. [Suspect]
     Active Substance: MOMETASONE FUROATE
     Indication: ALOPECIA AREATA
     Route: 061
  4. METHYLPREDNISOLONE. [Suspect]
     Active Substance: METHYLPREDNISOLONE
     Indication: ALOPECIA AREATA
     Dosage: 500MG FOR 3 DAYS (3 COURSES OF PULSE THERAPY)
     Route: 042
     Dates: start: 201305
  5. CEPHARANTHINE [Concomitant]
     Active Substance: CEPHARANTHINE
     Indication: ALOPECIA AREATA
     Route: 048

REACTIONS (1)
  - Osteonecrosis [Recovering/Resolving]
